FAERS Safety Report 5359556-7 (Version None)
Quarter: 2007Q2

REPORT INFORMATION
  Report Type: 
  Country: None (occurrence: None)
  Receive Date: 20070615
  Receipt Date: 20070604
  Transmission Date: 20071010
  Serious: Yes (Other)
  Sender: FDA-Public Use
  Company Number: US-PFIZER INC-2007047310

PATIENT

DRUGS (4)
  1. EXUBERA [Suspect]
  2. STATINS [Concomitant]
  3. GLUCOPHAGE [Concomitant]
  4. AMARYL [Concomitant]

REACTIONS (2)
  - RASH [None]
  - URTICARIA [None]
